FAERS Safety Report 24066548 (Version 1)
Quarter: 2024Q3

REPORT INFORMATION
  Report Type: Spontaneous
  Country: AT (occurrence: AT)
  Receive Date: 20240709
  Receipt Date: 20240709
  Transmission Date: 20241016
  Serious: Yes (Other)
  Sender: GUERBET
  Company Number: None

PATIENT
  Age: 41 Year
  Sex: Female
  Weight: 77 kg

DRUGS (1)
  1. DOTAREM [Suspect]
     Active Substance: GADOTERATE MEGLUMINE
     Indication: Magnetic resonance imaging
     Dates: start: 20240606, end: 20240606

REACTIONS (3)
  - Rash macular [Recovered/Resolved]
  - Cardiovascular disorder [Recovered/Resolved]
  - Procedural vomiting [Recovered/Resolved]

NARRATIVE: CASE EVENT DATE: 20240606
